FAERS Safety Report 11261356 (Version 2)
Quarter: 2015Q3

REPORT INFORMATION
  Report Type: Spontaneous
  Country: US (occurrence: US)
  Receive Date: 20150710
  Receipt Date: 20150720
  Transmission Date: 20151125
  Serious: No
  Sender: FDA-Public Use
  Company Number: US-BAYER-2015-368047

PATIENT
  Age: 67 Year
  Sex: Female

DRUGS (2)
  1. CLIMARA [Suspect]
     Active Substance: ESTRADIOL
     Dosage: 0.05 MG/24HR, CONT
     Route: 062
  2. CLIMARA [Suspect]
     Active Substance: ESTRADIOL
     Dosage: 0.05 MG/24HR, CONT
     Route: 062

REACTIONS (6)
  - Administration site swelling [Recovered/Resolved]
  - Product quality issue [None]
  - Product adhesion issue [None]
  - Urticaria [Recovered/Resolved]
  - Application site erythema [Recovered/Resolved]
  - Skin discolouration [Not Recovered/Not Resolved]
